FAERS Safety Report 13879413 (Version 1)
Quarter: 2017Q3

REPORT INFORMATION
  Report Type: Spontaneous
  Country: US (occurrence: US)
  Receive Date: 20170817
  Receipt Date: 20170817
  Transmission Date: 20171127
  Serious: No
  Sender: FDA-Public Use
  Company Number: US-BAUSCH-BL-2016-016059

PATIENT
  Age: 66 Year
  Sex: Male
  Weight: 61.29 kg

DRUGS (2)
  1. AMLODIPINE [Concomitant]
     Active Substance: AMLODIPINE BESYLATE
     Indication: HYPERTENSION
     Route: 048
  2. DORZOLAMIDE HYDROCHLORIDE OPHTHALMIC SOLUTION 2% [Suspect]
     Active Substance: DORZOLAMIDE HYDROCHLORIDE
     Indication: EYE DISORDER
     Dosage: IN THE AFFECTED EYE
     Route: 047
     Dates: start: 201607

REACTIONS (4)
  - Rhinorrhoea [Not Recovered/Not Resolved]
  - Eye pain [Recovered/Resolved]
  - Dysgeusia [Recovered/Resolved]
  - Lacrimation increased [Not Recovered/Not Resolved]

NARRATIVE: CASE EVENT DATE: 201607
